FAERS Safety Report 7474879-3 (Version None)
Quarter: 2011Q2

REPORT INFORMATION
  Report Type: 
  Country: None (occurrence: None)
  Receive Date: 20110512
  Receipt Date: 20110502
  Transmission Date: 20111010
  Serious: Yes (Other)
  Sender: FDA-Public Use
  Company Number: US-BAYER-2011-017643

PATIENT
  Sex: Female

DRUGS (2)
  1. ALCOWIPES [Suspect]
  2. BETAFERON [Suspect]
     Indication: MULTIPLE SCLEROSIS
     Dosage: 8 MIU, QOD
     Route: 058
     Dates: start: 20101113

REACTIONS (6)
  - OEDEMA PERIPHERAL [None]
  - HYPOAESTHESIA [None]
  - INJECTION SITE MASS [None]
  - PAIN IN EXTREMITY [None]
  - INJECTION SITE INFECTION [None]
  - GAIT DISTURBANCE [None]
